FAERS Safety Report 7050299-0 (Version None)
Quarter: 2010Q4

REPORT INFORMATION
  Report Type: 
  Country: None (occurrence: None)
  Receive Date: 20101018
  Receipt Date: 20101008
  Transmission Date: 20110411
  Serious: Yes (Other)
  Sender: FDA-Public Use
  Company Number: GXKR2010GB11439

PATIENT
  Age: 72 Year
  Sex: Female

DRUGS (2)
  1. ALENDRONIC ACID (NGX) [Suspect]
     Indication: OSTEOPOROSIS
     Dosage: 70 MG, QW
     Route: 048
     Dates: start: 20100812, end: 20101002
  2. CALCEOS [Concomitant]

REACTIONS (1)
  - HAEMATURIA [None]
